FAERS Safety Report 5461018-3 (Version None)
Quarter: 2007Q3

REPORT INFORMATION
  Report Type: 
  Country: None (occurrence: None)
  Receive Date: 20070822
  Receipt Date: 20070508
  Transmission Date: 20080115
  Serious: Yes (Other)
  Sender: FDA-Public Use
  Company Number: 2007006289

PATIENT
  Age: 65 Year
  Sex: Female
  Weight: 108.9 kg

DRUGS (7)
  1. NORVASC [Suspect]
     Indication: HYPERTENSION
     Dosage: 2.5 MG (2.5 MG, 1 IN 1 D); 5 MG (5MG, 1 IN 1 D); 10 MG (5 MG, 5 IN 2 D)
     Dates: start: 20061206, end: 20061214
  2. NORVASC [Suspect]
     Indication: HYPERTENSION
     Dosage: 2.5 MG (2.5 MG, 1 IN 1 D); 5 MG (5MG, 1 IN 1 D); 10 MG (5 MG, 5 IN 2 D)
     Dates: start: 20061214, end: 20070110
  3. NORVASC [Suspect]
     Indication: HYPERTENSION
     Dosage: 2.5 MG (2.5 MG, 1 IN 1 D); 5 MG (5MG, 1 IN 1 D); 10 MG (5 MG, 5 IN 2 D)
     Dates: start: 20070110, end: 20070119
  4. LASIX [Concomitant]
  5. CATAPRES [Concomitant]
  6. DIVOVANE (VALSARTAN) [Concomitant]
  7. COREG [Concomitant]

REACTIONS (4)
  - BLOOD PRESSURE INADEQUATELY CONTROLLED [None]
  - NAUSEA [None]
  - OEDEMA PERIPHERAL [None]
  - RENAL DISORDER [None]
